FAERS Safety Report 7450796-X (Version None)
Quarter: 2011Q2

REPORT INFORMATION
  Report Type: 
  Country: None (occurrence: None)
  Receive Date: 20110422
  Receipt Date: 20110414
  Transmission Date: 20111010
  Serious: Yes (Hospitalization)
  Sender: FDA-Public Use
  Company Number: 1000020246

PATIENT
  Age: 66 Year
  Sex: Female

DRUGS (3)
  1. CITALOPRAM HYDROBROMIDE [Suspect]
     Indication: DEPRESSION
     Dosage: 20 MG (20 MG,1 IN 1 D), ORAL
     Route: 048
  2. RISPERDAL [Suspect]
     Indication: DEPRESSION
     Dosage: 2 MG (2 MG,1 IN 1 D), ORAL
     Route: 048
  3. DEPAMIDE (VALPROMIDE) (TABLETS) [Suspect]
     Indication: DEPRESSION
     Dosage: 600 MG (300 MG,2 IN 1 D),ORAL
     Route: 048
     Dates: end: 20110307

REACTIONS (6)
  - ORTHOSTATIC HYPOTENSION [None]
  - DISORIENTATION [None]
  - GENERAL PHYSICAL HEALTH DETERIORATION [None]
  - EXTRAPYRAMIDAL DISORDER [None]
  - FALL [None]
  - VERTIGO [None]
